FAERS Safety Report 25889562 (Version 4)
Quarter: 2025Q4

REPORT INFORMATION
  Report Type: Spontaneous
  Country: US (occurrence: US)
  Receive Date: 20251007
  Receipt Date: 20251117
  Transmission Date: 20260117
  Serious: Yes (Hospitalization)
  Sender: ASTELLAS
  Company Number: US-ASTELLAS-2025-AER-054248

PATIENT
  Age: 66 Year
  Sex: Female
  Weight: 76 kg

DRUGS (28)
  1. TACROLIMUS [Suspect]
     Active Substance: TACROLIMUS
     Indication: Immunosuppressant drug therapy
     Route: 048
     Dates: start: 20230914
  2. TACROLIMUS [Suspect]
     Active Substance: TACROLIMUS
     Route: 048
     Dates: start: 20230920, end: 202402
  3. TACROLIMUS [Suspect]
     Active Substance: TACROLIMUS
     Route: 048
     Dates: start: 20240209
  4. CYCLOSPORINE [Suspect]
     Active Substance: CYCLOSPORINE
     Indication: Bronchiolitis obliterans syndrome
     Dosage: AEROSOL (SPRAY AND INHALATION)
     Route: 055
     Dates: start: 20210503, end: 20220418
  5. CYCLOSPORINE [Suspect]
     Active Substance: CYCLOSPORINE
     Dosage: AEROSOL (SPRAY AND INHALATION)
     Route: 055
     Dates: start: 20220418, end: 20240506
  6. ZOLPIDEM TARTRATE [Concomitant]
     Active Substance: ZOLPIDEM TARTRATE
     Indication: Insomnia
     Dosage: ONGOING
     Route: 065
     Dates: start: 20200115
  7. RESTASIS [Concomitant]
     Active Substance: CYCLOSPORINE
     Indication: Dry eye
     Dosage: ONGOING
     Route: 065
     Dates: start: 20210518
  8. AMLODIPINE [Concomitant]
     Active Substance: AMLODIPINE BESYLATE
     Indication: Hypertension
     Dosage: ONGOING
     Route: 065
     Dates: start: 20211222
  9. LAMIVUDINE [Concomitant]
     Active Substance: LAMIVUDINE
     Indication: Prophylaxis
     Dosage: ONGOING
     Route: 065
     Dates: start: 20211222
  10. MAGNESIUM OXIDE [Concomitant]
     Active Substance: MAGNESIUM OXIDE
     Indication: Gastrooesophageal reflux disease
     Dosage: ONGOING
     Route: 065
     Dates: start: 20220106
  11. PREDNISONE [Concomitant]
     Active Substance: PREDNISONE
     Indication: Immunosuppressant drug therapy
     Dosage: ONGOING
     Route: 065
     Dates: start: 20220105
  12. ROSUVASTATIN [Concomitant]
     Active Substance: ROSUVASTATIN
     Indication: Hyperlipidaemia
     Dosage: ONGOING
     Route: 065
     Dates: start: 20220217
  13. TRAMADOL [Concomitant]
     Active Substance: TRAMADOL
     Indication: Back pain
     Dosage: ONGOING
     Route: 065
     Dates: start: 20220622
  14. TRAMADOL HCL [Concomitant]
     Active Substance: TRAMADOL HYDROCHLORIDE
     Indication: Pain
     Dosage: ONGOING
     Route: 065
     Dates: start: 20220624
  15. PROPRANOLOL [Concomitant]
     Active Substance: PROPRANOLOL HYDROCHLORIDE
     Indication: Hypertension
     Dosage: ONGOING
     Route: 065
     Dates: start: 20230404
  16. BENZONATATE [Concomitant]
     Active Substance: BENZONATATE
     Indication: Cough
     Dosage: ONGOING
     Route: 065
     Dates: start: 20231229
  17. LAMOTRIGINE [Concomitant]
     Active Substance: LAMOTRIGINE
     Indication: Bipolar disorder
     Dosage: ONGOING
     Route: 065
     Dates: start: 20240130
  18. NYSTATIN [Concomitant]
     Active Substance: NYSTATIN
     Indication: Antifungal treatment
     Dosage: ONGOING
     Route: 065
     Dates: start: 20230322
  19. CALCIUM CITRATE\CHOLECALCIFEROL [Concomitant]
     Active Substance: CALCIUM CITRATE\CHOLECALCIFEROL
     Indication: Vitamin D deficiency
     Dosage: ONGOING
     Route: 065
     Dates: start: 20230404
  20. AZITHROMYCIN [Concomitant]
     Active Substance: AZITHROMYCIN
     Indication: Immunosuppressant drug therapy
     Dosage: ONGOING
     Route: 065
     Dates: start: 20230622
  21. ATOVAQUONE [Concomitant]
     Active Substance: ATOVAQUONE
     Indication: Prophylaxis
     Dosage: ONGOING
     Route: 065
     Dates: start: 20240106
  22. POSACONAZOLE [Concomitant]
     Active Substance: POSACONAZOLE
     Indication: Prophylaxis
     Dosage: ONGOING
     Route: 065
     Dates: start: 20240122
  23. ERGOCALCIFEROL [Concomitant]
     Active Substance: ERGOCALCIFEROL
     Indication: Hypovitaminosis
     Dosage: ONGOING
     Route: 065
     Dates: start: 20240209
  24. AZATHIOPRINE [Concomitant]
     Active Substance: AZATHIOPRINE
     Indication: Immunosuppressant drug therapy
     Dosage: ONGOING
     Route: 065
     Dates: start: 20240214
  25. ESTRADIOL [Concomitant]
     Active Substance: ESTRADIOL
     Dosage: ONGOING
     Route: 065
     Dates: start: 20160324
  26. ALENDRONATE SODIUM [Concomitant]
     Active Substance: ALENDRONATE SODIUM
     Dosage: ONGOING
     Route: 065
     Dates: start: 20160620
  27. OMEPRAZOLE [Concomitant]
     Active Substance: OMEPRAZOLE
     Indication: Gastrooesophageal reflux disease
     Dosage: ONGOING
     Route: 065
     Dates: start: 20180423
  28. CLONAZEPAM [Concomitant]
     Active Substance: CLONAZEPAM
     Indication: Bipolar disorder
     Dosage: ONGOING
     Route: 065
     Dates: start: 20190422

REACTIONS (2)
  - Toxicity to various agents [Recovered/Resolved]
  - Encephalopathy [Recovered/Resolved]

NARRATIVE: CASE EVENT DATE: 20240304
